FAERS Safety Report 5553443-7 (Version None)
Quarter: 2007Q4

REPORT INFORMATION
  Report Type: 
  Country: None (occurrence: None)
  Receive Date: 20071213
  Receipt Date: 20071211
  Transmission Date: 20080405
  Serious: Yes (Hospitalization)
  Sender: FDA-Public Use
  Company Number: US-BRISTOL-MYERS SQUIBB COMPANY-13853155

PATIENT
  Age: 85 Year
  Sex: Male

DRUGS (9)
  1. COUMADIN [Suspect]
     Indication: ATRIAL FIBRILLATION
     Dosage: ALTERNATE 4 + 5 MG.
  2. REVLIMID [Suspect]
     Indication: MYELODYSPLASTIC SYNDROME
     Dosage: STOPPED IN JUN-2007. RESTARTED AGAIN IN JUL-2007 AT 5 MG BEDTIME.
     Route: 048
     Dates: start: 20070403
  3. PREDNISONE [Concomitant]
  4. CARAFATE [Concomitant]
  5. NEXIUM [Concomitant]
  6. VITAMIN CAP [Concomitant]
  7. TOPROL-XL [Concomitant]
  8. FOLIC ACID [Concomitant]
  9. DIGITEK [Concomitant]

REACTIONS (3)
  - GASTRITIS [None]
  - HAEMORRHAGE [None]
  - PANCREATITIS [None]
